FAERS Safety Report 7733615-3 (Version None)
Quarter: 2011Q3

REPORT INFORMATION
  Report Type: 
  Country: None (occurrence: None)
  Receive Date: 20110907
  Receipt Date: 20110826
  Transmission Date: 20111222
  Serious: Yes (Hospitalization)
  Sender: FDA-Public Use
  Company Number: US-UCBSA-037866

PATIENT
  Sex: Male
  Weight: 102 kg

DRUGS (3)
  1. CIMZIA [Suspect]
     Dosage: 2 SHOTS
     Route: 058
     Dates: start: 20110101
  2. CIMZIA [Suspect]
     Indication: CROHN'S DISEASE
     Dosage: DOSE: 2 SHOTS
     Route: 058
     Dates: start: 20110101, end: 20110101
  3. COUMADIN [Suspect]

REACTIONS (3)
  - TOXICITY TO VARIOUS AGENTS [None]
  - DRUG INEFFECTIVE [None]
  - GASTROINTESTINAL HAEMORRHAGE [None]
